FAERS Safety Report 8484034-6 (Version None)
Quarter: 2012Q2

REPORT INFORMATION
  Report Type: 
  Country: None (occurrence: None)
  Receive Date: 20120627
  Receipt Date: 20120627
  Transmission Date: 20120825
  Serious: No
  Sender: FDA-Public Use
  Company Number: None

PATIENT
  Age: 69 Year
  Sex: Female
  Weight: 66 kg

DRUGS (10)
  1. AUGMENTIN '125' [Concomitant]
  2. CLARITIN-D [Concomitant]
  3. VENLAFAXINE [Concomitant]
  4. IBUPROFEN [Concomitant]
  5. DIPHENHYDRAMINE [Concomitant]
  6. OMEPRAZOLE [Concomitant]
  7. EXEMESTANE [Concomitant]
  8. EVEROLIMUS [Suspect]
     Indication: BREAST CANCER
     Dosage: 10MG, PO, QD
     Route: 048
     Dates: start: 20120525, end: 20120613
  9. NEXIUM [Concomitant]
  10. AMBIEN [Concomitant]

REACTIONS (2)
  - ALANINE AMINOTRANSFERASE INCREASED [None]
  - ASPARTATE AMINOTRANSFERASE INCREASED [None]
